FAERS Safety Report 4971365-7 (Version None)
Quarter: 2006Q2

REPORT INFORMATION
  Report Type: 
  Country: None (occurrence: None)
  Receive Date: 20060413
  Receipt Date: 20060208
  Transmission Date: 20061013
  Serious: Yes (Hospitalization, Other)
  Sender: FDA-Public Use
  Company Number: FR-BRISTOL-MYERS SQUIBB COMPANY-13277504

PATIENT
  Age: 56 Year
  Sex: Female

DRUGS (16)
  1. APROVEL TABS 150 MG [Suspect]
     Route: 048
     Dates: end: 20060116
  2. GLUCOPHAGE [Suspect]
  3. ALDACTAZINE [Suspect]
     Dates: end: 20060116
  4. MOPRAL [Suspect]
  5. TILCOTIL [Suspect]
     Dates: end: 20060116
  6. CRESTOR [Suspect]
     Dates: end: 20060116
  7. ARTHROTEC [Concomitant]
     Dates: end: 20051125
  8. AVLOCARDYL [Concomitant]
  9. DIAMICRON [Concomitant]
  10. LEVOTHYROX [Concomitant]
  11. MEDIATENSYL [Concomitant]
  12. MYOLASTAN [Concomitant]
  13. OESCLIM [Concomitant]
     Route: 062
  14. RIVOTRIL [Concomitant]
  15. SEROPRAM [Concomitant]
  16. TOPALGIC [Concomitant]

REACTIONS (13)
  - ANOREXIA [None]
  - CONFUSIONAL STATE [None]
  - DEPRESSION [None]
  - DISORIENTATION [None]
  - GENERAL PHYSICAL HEALTH DETERIORATION [None]
  - HYPERVOLAEMIA [None]
  - HYPOGLYCAEMIA [None]
  - IRON DEFICIENCY ANAEMIA [None]
  - OEDEMA PERIPHERAL [None]
  - OVERDOSE [None]
  - PETIT MAL EPILEPSY [None]
  - RENAL FAILURE ACUTE [None]
  - TUBULOINTERSTITIAL NEPHRITIS [None]
